FAERS Safety Report 12838867 (Version 5)
Quarter: 2016Q4

REPORT INFORMATION
  Report Type: Spontaneous
  Country: US (occurrence: US)
  Receive Date: 20161012
  Receipt Date: 20161228
  Transmission Date: 20170207
  Serious: No
  Sender: FDA-Public Use
  Company Number: US-PFIZER INC-2016466979

PATIENT
  Age: 84 Year
  Sex: Female
  Weight: 74 kg

DRUGS (12)
  1. PLAVIX [Concomitant]
     Active Substance: CLOPIDOGREL BISULFATE
     Dosage: 75 MG, UNK
     Dates: start: 20160524, end: 20161123
  2. VITAMIN B12 [Concomitant]
     Active Substance: CYANOCOBALAMIN
     Dosage: UNK, MONTHLY (B12 1CC IM MONTHLY)
     Dates: start: 1990
  3. PRAVASTATIN. [Concomitant]
     Active Substance: PRAVASTATIN
     Dosage: 40 MG, UNK
     Dates: start: 1980
  4. SLO-NIACIN [Concomitant]
     Active Substance: DIETARY SUPPLEMENT
     Dosage: UNK (250)
     Dates: start: 2002
  5. COQ10 [Concomitant]
     Active Substance: UBIDECARENONE
     Dosage: UNK
     Dates: start: 1990
  6. LISINOPRIL. [Concomitant]
     Active Substance: LISINOPRIL
     Dosage: 10 MG, UNK
     Dates: start: 1990
  7. DOFETILIDE. [Suspect]
     Active Substance: DOFETILIDE
     Indication: ATRIAL FIBRILLATION
     Dosage: 250 UG, 2X/DAY
     Route: 048
     Dates: start: 20160912, end: 20161015
  8. LEVOTHYROXINE. [Concomitant]
     Active Substance: LEVOTHYROXINE
     Dosage: 0.05 MG, UNK
     Dates: start: 1980
  9. BABY ASPIRIN [Concomitant]
     Active Substance: ASPIRIN
     Dosage: UNK
  10. DOFETILIDE. [Suspect]
     Active Substance: DOFETILIDE
     Dosage: UNK
  11. ATENOLOL. [Concomitant]
     Active Substance: ATENOLOL
     Dosage: 50 MG, UNK
     Dates: start: 1980
  12. VITAMIN D3 [Concomitant]
     Active Substance: CHOLECALCIFEROL
     Dosage: 2000 IU, UNK
     Dates: start: 1990

REACTIONS (3)
  - Drug ineffective [Not Recovered/Not Resolved]
  - Lethargy [Unknown]
  - Sinus arrhythmia [Not Recovered/Not Resolved]

NARRATIVE: CASE EVENT DATE: 201609
